FAERS Safety Report 5561872-0 (Version None)
Quarter: 2007Q4

REPORT INFORMATION
  Report Type: 
  Country: None (occurrence: None)
  Receive Date: 20071215
  Receipt Date: 20071005
  Transmission Date: 20080405
  Serious: No
  Sender: FDA-Public Use
  Company Number: US-AMGEN-KDL246836

PATIENT
  Sex: Female

DRUGS (3)
  1. ENBREL [Suspect]
     Indication: DRUG USE FOR UNKNOWN INDICATION
     Route: 058
     Dates: start: 20061018
  2. ENBREL [Suspect]
     Indication: POLYARTHRITIS
  3. AZULFIDINE EN-TABS [Concomitant]
     Route: 048
     Dates: start: 20050101

REACTIONS (2)
  - UTERINE HAEMORRHAGE [None]
  - UTERINE SPASM [None]
